FAERS Safety Report 10955621 (Version 1)
Quarter: 2015Q1

REPORT INFORMATION
  Report Type: Spontaneous
  Country: US (occurrence: None)
  Receive Date: 20150325
  Receipt Date: 20150325
  Transmission Date: 20150721
  Serious: No
  Sender: FDA-Public Use
  Company Number: None

PATIENT
  Age: 88 Year
  Sex: Male

DRUGS (3)
  1. CEFTAROLINE [Suspect]
     Active Substance: CEFTAROLINE
     Indication: SEPTIC EMBOLUS
     Route: 042
     Dates: start: 20150120, end: 20150224
  2. CEFTAROLINE [Suspect]
     Active Substance: CEFTAROLINE
     Indication: STAPHYLOCOCCAL BACTERAEMIA
     Route: 042
     Dates: start: 20150120, end: 20150224
  3. CEFTAROLINE [Suspect]
     Active Substance: CEFTAROLINE
     Indication: ENDOCARDITIS
     Route: 042
     Dates: start: 20150120, end: 20150224

REACTIONS (5)
  - Urticaria [None]
  - Stevens-Johnson syndrome [None]
  - Rash [None]
  - Pruritus [None]
  - Toxic epidermal necrolysis [None]

NARRATIVE: CASE EVENT DATE: 20150224
